FAERS Safety Report 7047832-1 (Version None)
Quarter: 2010Q4

REPORT INFORMATION
  Report Type: 
  Country: None (occurrence: None)
  Receive Date: 20101015
  Receipt Date: 20101008
  Transmission Date: 20110411
  Serious: No
  Sender: FDA-Public Use
  Company Number: US-PFIZER INC-2010129001

PATIENT
  Sex: Female
  Weight: 44.444 kg

DRUGS (3)
  1. DIFLUCAN [Suspect]
     Indication: OESOPHAGEAL CANDIDIASIS
     Dosage: 200 MG, 1X/DAY
     Route: 048
     Dates: start: 20100929
  2. LEVOXYL [Concomitant]
     Indication: THYROID DISORDER
     Dosage: UNK
  3. THYROID [Concomitant]
     Indication: THYROID DISORDER
     Dosage: UNK

REACTIONS (2)
  - DIARRHOEA [None]
  - WEIGHT DECREASED [None]
